FAERS Safety Report 7366925-2 (Version None)
Quarter: 2011Q1

REPORT INFORMATION
  Report Type: 
  Country: None (occurrence: None)
  Receive Date: 20110322
  Receipt Date: 20110311
  Transmission Date: 20110831
  Serious: Yes (Other)
  Sender: FDA-Public Use
  Company Number: B0706244A

PATIENT
  Age: 50 Year
  Sex: Female

DRUGS (4)
  1. FRAXODI [Suspect]
     Route: 058
  2. PREVISCAN [Suspect]
     Route: 048
  3. SINTROM [Suspect]
     Route: 048
  4. ARIXTRA [Suspect]
     Route: 058

REACTIONS (1)
  - ANGIOEDEMA [None]
